FAERS Safety Report 5283441-2 (Version None)
Quarter: 2007Q1

REPORT INFORMATION
  Report Type: 
  Country: None (occurrence: None)
  Receive Date: 20061226
  Receipt Date: 20061122
  Transmission Date: 20070707
  Serious: No
  Sender: FDA-Public Use
  Company Number: 2006PV025727

PATIENT
  Age: 60 Year
  Sex: Male
  Weight: 101.6057 kg

DRUGS (4)
  1. SYMLIN [Suspect]
     Indication: DIABETES MELLITUS NON-INSULIN-DEPENDENT
     Dosage: 60 MCG;SC
     Route: 058
     Dates: start: 20061116
  2. HUMULIN 70/30 [Concomitant]
  3. METFORMIN [Concomitant]
  4. AVANDIA [Concomitant]

REACTIONS (3)
  - DECREASED APPETITE [None]
  - HYPERSOMNIA [None]
  - SLUGGISHNESS [None]
